FAERS Safety Report 4288513-7 (Version None)
Quarter: 2004Q1

REPORT INFORMATION
  Report Type: 
  Country: None (occurrence: None)
  Receive Date: 20040205
  Receipt Date: 20040121
  Transmission Date: 20041129
  Serious: Yes (Death)
  Sender: FDA-Public Use
  Company Number: EWC040137766

PATIENT
  Age: 48 Year
  Sex: Male

DRUGS (3)
  1. OLANZAPINE [Suspect]
     Indication: MENTAL DISORDER
     Dosage: 5 MG/DAY
  2. DEPAKENE [Concomitant]
  3. TRANXENE [Concomitant]

REACTIONS (3)
  - MUSCLE RIGIDITY [None]
  - PULMONARY EMBOLISM [None]
  - SKIN DISCOLOURATION [None]
